FAERS Safety Report 4780091-9 (Version None)
Quarter: 2005Q3

REPORT INFORMATION
  Report Type: 
  Country: None (occurrence: None)
  Receive Date: 20050914
  Receipt Date: 20050427
  Transmission Date: 20060218
  Serious: Yes (Hospitalization)
  Sender: FDA-Public Use
  Company Number: 163-20785-05040559

PATIENT
  Age: 54 Year
  Sex: Female

DRUGS (8)
  1. THALOMID [Suspect]
     Indication: MULTIPLE MYELOMA
     Dosage: ORAL
     Route: 048
     Dates: start: 20050406
  2. VELCADE [Suspect]
     Indication: MULTIPLE MYELOMA
     Dosage: 1.5 MG,
     Dates: start: 20050406, end: 20050406
  3. DEXAMETHASONE [Suspect]
     Indication: MULTIPLE MYELOMA
  4. CISPLATIN [Suspect]
     Indication: MULTIPLE MYELOMA
  5. ADRIAMYCIN PFS [Suspect]
     Indication: MULTIPLE MYELOMA
  6. CYCLOPHOSPHAMIDE [Suspect]
     Indication: MULTIPLE MYELOMA
  7. ETOPOSIDE [Suspect]
     Indication: MULTIPLE MYELOMA
  8. HYDROCODONE (HYDROCODONE) (TABLETS) [Concomitant]

REACTIONS (4)
  - ASTHENIA [None]
  - DECREASED APPETITE [None]
  - NAUSEA [None]
  - SOMNOLENCE [None]
